FAERS Safety Report 21410604 (Version 1)
Quarter: 2022Q4

REPORT INFORMATION
  Report Type: Spontaneous
  Country: US (occurrence: None)
  Receive Date: 20221004
  Receipt Date: 20221004
  Transmission Date: 20230113
  Serious: No
  Sender: FDA-Public Use
  Company Number: None

PATIENT
  Age: 55 Year
  Sex: Female
  Weight: 81.9 kg

DRUGS (13)
  1. PAXLOVID [Suspect]
     Active Substance: NIRMATRELVIR\RITONAVIR
     Indication: COVID-19
     Dosage: OTHER QUANTITY : 3 TABLET(S);?FREQUENCY : TWICE A DAY;?
     Route: 048
     Dates: start: 20220925, end: 20220927
  2. metoprolol 50mg once a day [Concomitant]
  3. januvia 100 mg once a day [Concomitant]
  4. tresciba 46 units a day [Concomitant]
  5. hydrochlorothiazide 25 mg once a day [Concomitant]
  6. Ezetimibe 10 mg a day [Concomitant]
  7. Metformin 1000mg twice a day [Concomitant]
  8. baby aspirin once a day [Concomitant]
  9. magnesium 250 mg a day [Concomitant]
  10. loratidine 10 mg once a day [Concomitant]
  11. Iron 65mg a day [Concomitant]
  12. vitamin c 1000 mg a day [Concomitant]
  13. Vitamin d 25 mcg [Concomitant]

REACTIONS (4)
  - Abdominal pain upper [None]
  - Chest discomfort [None]
  - Feeling abnormal [None]
  - Heart rate decreased [None]

NARRATIVE: CASE EVENT DATE: 20220927
